FAERS Safety Report 10245646 (Version 1)
Quarter: 2014Q2

REPORT INFORMATION
  Report Type: Spontaneous
  Country: US (occurrence: US)
  Receive Date: 20140619
  Receipt Date: 20140619
  Transmission Date: 20141212
  Serious: No
  Sender: FDA-Public Use
  Company Number: US-009507513-1406USA008686

PATIENT
  Age: 18 Year
  Sex: Female

DRUGS (1)
  1. GRASTEK [Suspect]
     Indication: ANTIALLERGIC THERAPY
     Dosage: DOSE/FREQUENCY: 2800 BAU/ONCE DAILY
     Route: 060

REACTIONS (5)
  - Swollen tongue [Recovered/Resolved]
  - Glossitis [Recovered/Resolved]
  - Throat irritation [Recovered/Resolved]
  - Glossodynia [Recovered/Resolved]
  - Pharyngeal oedema [Recovered/Resolved]
